FAERS Safety Report 7123635 (Version 3)
Quarter: 2015Q2

REPORT INFORMATION
  Report Type: Spontaneous
  Country: US (occurrence: US)
  Receive Date: 20090921
  Receipt Date: 20150415
  Transmission Date: 20150821
  Serious: Yes (Hospitalization, Other)
  Sender: FDA-Public Use
  Company Number: US-ELI_LILLY_AND_COMPANY-US200909001998

PATIENT
  Age: 68 Year
  Sex: Female

DRUGS (6)
  1. VITAMIN D [Concomitant]
     Active Substance: CHOLECALCIFEROL
  2. OMEPRAZOLE. [Concomitant]
     Active Substance: OMEPRAZOLE
  3. NORMATOL [Concomitant]
     Indication: DIARRHOEA
  4. CALCIUM [Concomitant]
     Active Substance: CALCIUM
  5. CODEINE [Concomitant]
     Active Substance: CODEINE
  6. FORTEO [Suspect]
     Active Substance: TERIPARATIDE
     Indication: OSTEOPOROSIS
     Dosage: UNK UNK, QD
     Route: 065
     Dates: start: 200907, end: 200911

REACTIONS (6)
  - Abscess intestinal [Unknown]
  - Back pain [Recovered/Resolved]
  - Blood calcium increased [Unknown]
  - Fistula [Unknown]
  - Fear [Unknown]
  - Crohn^s disease [Unknown]

NARRATIVE: CASE EVENT DATE: 2009
